FAERS Safety Report 15838343 (Version 9)
Quarter: 2019Q4

REPORT INFORMATION
  Report Type: Report from Study
  Country: TW (occurrence: TW)
  Receive Date: 20190117
  Receipt Date: 20191223
  Transmission Date: 20200122
  Serious: Yes (Hospitalization, Other)
  Sender: FDA-Public Use
  Company Number: TW-INCYTE CORPORATION-2019IN000242

PATIENT

DRUGS (9)
  1. JAKAVI [Suspect]
     Active Substance: RUXOLITINIB
     Indication: MYELOFIBROSIS
     Dosage: 20 MG, QD
     Route: 048
     Dates: start: 20151110
  2. ZOPICLONE [Concomitant]
     Active Substance: ZOPICLONE
     Indication: PRODUCT USED FOR UNKNOWN INDICATION
     Dosage: 1 DF, HSPRN
     Route: 048
  3. CALCIUM CARBONATE. [Concomitant]
     Active Substance: CALCIUM CARBONATE
     Indication: PRODUCT USED FOR UNKNOWN INDICATION
     Dosage: 1 DF, TID, AC (BEFORE MEALS)
     Route: 048
  4. THALIDOMIDE [Concomitant]
     Active Substance: THALIDOMIDE
     Dosage: 2 DF, BID
     Route: 065
     Dates: start: 201610
  5. XANAX [Concomitant]
     Active Substance: ALPRAZOLAM
     Indication: PRODUCT USED FOR UNKNOWN INDICATION
     Dosage: 1 DF, QN
     Route: 048
  6. JAKAVI [Suspect]
     Active Substance: RUXOLITINIB
     Dosage: 20 MG, QD
     Route: 048
     Dates: start: 20180207
  7. EXJADE [Concomitant]
     Active Substance: DEFERASIROX
     Indication: PRODUCT USED FOR UNKNOWN INDICATION
     Dosage: 6 DF, QD, AC (BEFORE MEALS)
     Route: 048
  8. THALIDOMIDE [Concomitant]
     Active Substance: THALIDOMIDE
     Indication: PRODUCT USED FOR UNKNOWN INDICATION
     Dosage: 1 DF, QHS
     Route: 065
     Dates: start: 201509
  9. THROUGH [Concomitant]
     Indication: PRODUCT USED FOR UNKNOWN INDICATION
     Dosage: 2 DF, QN
     Route: 048

REACTIONS (43)
  - Pyrexia [Recovering/Resolving]
  - Muscular weakness [Unknown]
  - Urinary incontinence [Unknown]
  - Blood urea increased [Unknown]
  - Splenic lesion [Unknown]
  - Glucose urine present [Unknown]
  - Anaemia [Unknown]
  - Mitral valve incompetence [Unknown]
  - Fatigue [Unknown]
  - Escherichia bacteraemia [Unknown]
  - Pyuria [Unknown]
  - Drug ineffective [Unknown]
  - Conjunctival disorder [Unknown]
  - Blood pressure fluctuation [Unknown]
  - Chills [Unknown]
  - Pyrexia [Recovered/Resolved]
  - Pyrexia [Recovered/Resolved]
  - Decreased appetite [Unknown]
  - Blood glucose increased [Unknown]
  - Pyrexia [Recovered/Resolved]
  - Mitral valve calcification [Unknown]
  - Gallbladder cholesterolosis [Unknown]
  - Pericardial effusion [Unknown]
  - Productive cough [Unknown]
  - Peripheral swelling [Unknown]
  - Anal incontinence [Unknown]
  - Wheezing [Recovered/Resolved]
  - Activated partial thromboplastin time prolonged [Unknown]
  - Hepatic steatosis [Unknown]
  - Thrombocytopenia [Unknown]
  - Heart rate increased [Unknown]
  - Dyspnoea [Unknown]
  - Acute leukaemia [Unknown]
  - Aortic arteriosclerosis [Unknown]
  - Discoloured vomit [Unknown]
  - Pyrexia [Recovered/Resolved]
  - Haematuria [Unknown]
  - Interstitial lung disease [Unknown]
  - Cholelithiasis [Unknown]
  - Splenomegaly [Unknown]
  - Urinary tract infection [Unknown]
  - Altered state of consciousness [Unknown]
  - Pyrexia [Recovered/Resolved]

NARRATIVE: CASE EVENT DATE: 20181216
